FAERS Safety Report 7428863-6 (Version None)
Quarter: 2011Q2

REPORT INFORMATION
  Report Type: 
  Country: None (occurrence: None)
  Receive Date: 20110413
  Receipt Date: 20110329
  Transmission Date: 20111010
  Serious: Yes (Other)
  Sender: FDA-Public Use
  Company Number: 029689

PATIENT
  Sex: Female
  Weight: 68 kg

DRUGS (7)
  1. DICLOFENAC [Concomitant]
  2. TIGECYCLINE [Concomitant]
  3. CIMZIA [Suspect]
     Indication: CROHN'S DISEASE
     Dosage: 400 MG, 1X/MONTH SUBCUTANEOUS
     Route: 058
     Dates: start: 20101001
  4. CLARITHROMYCIN [Concomitant]
  5. CLINDAMYCINE /00166002/ [Concomitant]
  6. METHOTREXATE [Concomitant]
  7. LIPITOR [Concomitant]

REACTIONS (16)
  - CELLULITIS [None]
  - TOOTH ABSCESS [None]
  - SENSITIVITY OF TEETH [None]
  - EYELID OEDEMA [None]
  - DYSPNOEA [None]
  - MASS [None]
  - SINUS CONGESTION [None]
  - SINUSITIS [None]
  - LYMPHOMA [None]
  - EAR PAIN [None]
  - ERYTHEMA [None]
  - PHARYNGEAL OEDEMA [None]
  - LIPOMA [None]
  - TONGUE DISORDER [None]
  - AURICULAR SWELLING [None]
  - PAIN IN JAW [None]
